FAERS Safety Report 9156160 (Version 1)
Quarter: 2013Q1

REPORT INFORMATION
  Report Type: Spontaneous
  Country: US (occurrence: US)
  Receive Date: 20130311
  Receipt Date: 20130311
  Transmission Date: 20140127
  Serious: No
  Sender: FDA-Public Use
  Company Number: US-ASTRAZENECA-2013SE07015

PATIENT
  Age: 80 Year
  Sex: Male
  Weight: 74.8 kg

DRUGS (5)
  1. TOPROL XL [Suspect]
     Route: 048
  2. SEROQUEL [Suspect]
     Indication: DEMENTIA
     Route: 048
  3. SEROQUEL [Suspect]
     Indication: DEMENTIA
     Dosage: TO TWO AND TO ONE AND HALF TABLET AT BEDTIME
     Route: 048
  4. ISOSORBIDE [Concomitant]
  5. NAMENDA [Concomitant]

REACTIONS (4)
  - Restlessness [Unknown]
  - Insomnia [Unknown]
  - Intentional drug misuse [Unknown]
  - Off label use [Unknown]
